FAERS Safety Report 24801769 (Version 1)
Quarter: 2025Q1

REPORT INFORMATION
  Report Type: Spontaneous
  Country: US (occurrence: US)
  Receive Date: 20250102
  Receipt Date: 20250102
  Transmission Date: 20250408
  Serious: No
  Sender: HLS THERAPEUTICS
  Company Number: US-HLS-202400051

PATIENT
  Sex: Male

DRUGS (1)
  1. CLOZARIL [Suspect]
     Active Substance: CLOZAPINE
     Indication: Schizoaffective disorder
     Dosage: 500 MG EVERY NIGHT
     Route: 065

REACTIONS (4)
  - Weight increased [Unknown]
  - Sleep disorder [Unknown]
  - Libido decreased [Unknown]
  - Off label use [Unknown]
